FAERS Safety Report 7678021-5 (Version None)
Quarter: 2011Q3

REPORT INFORMATION
  Report Type: 
  Country: None (occurrence: None)
  Receive Date: 20110811
  Receipt Date: 20110804
  Transmission Date: 20111222
  Serious: Yes (Other)
  Sender: FDA-Public Use
  Company Number: JP-GLAXOSMITHKLINE-B0728285A

PATIENT
  Sex: Female

DRUGS (4)
  1. PAXIL [Suspect]
     Indication: PANIC DISORDER
     Route: 048
  2. PAXIL [Suspect]
     Route: 048
  3. ANXIOLYTIC [Concomitant]
  4. HYPNOTIC + SEDATIVE [Concomitant]

REACTIONS (13)
  - DYSSTASIA [None]
  - AMNESIA [None]
  - BALANCE DISORDER [None]
  - PALPITATIONS [None]
  - BLOOD PRESSURE INCREASED [None]
  - DYSTONIA [None]
  - AGGRESSION [None]
  - DRUG WITHDRAWAL SYNDROME [None]
  - HYPOAESTHESIA [None]
  - SPEECH DISORDER [None]
  - MENTAL IMPAIRMENT [None]
  - DYSKINESIA [None]
  - MOOD ALTERED [None]
